FAERS Safety Report 9473105 (Version 1)
Quarter: 2013Q3

REPORT INFORMATION
  Report Type: Spontaneous
  Country: US (occurrence: US)
  Receive Date: 20130823
  Receipt Date: 20130823
  Transmission Date: 20140515
  Serious: No
  Sender: FDA-Public Use
  Company Number: US-BRISTOL-MYERS SQUIBB COMPANY-17443615

PATIENT
  Age: 68 Year
  Sex: Male
  Weight: 74.83 kg

DRUGS (10)
  1. SPRYCEL [Suspect]
     Indication: CHRONIC MYELOID LEUKAEMIA
     Dosage: AROUND MAR 2012
     Dates: start: 2012
  2. GLEEVEC [Concomitant]
  3. GLIPIZIDE [Concomitant]
  4. LANTUS [Concomitant]
  5. SIMVASTATIN [Concomitant]
  6. MAGNESIUM [Concomitant]
  7. PLAVIX [Concomitant]
  8. LASIX [Concomitant]
  9. WARFARIN [Concomitant]
  10. METOPROLOL [Concomitant]

REACTIONS (4)
  - Diarrhoea [Unknown]
  - Vomiting [Unknown]
  - Local swelling [Unknown]
  - Drug hypersensitivity [Unknown]
